FAERS Safety Report 15500928 (Version 1)
Quarter: 2018Q4

REPORT INFORMATION
  Report Type: Spontaneous
  Country: US (occurrence: US)
  Receive Date: 20181015
  Receipt Date: 20181015
  Transmission Date: 20190205
  Serious: Yes (Other)
  Sender: FDA-Public Use
  Company Number: US-AMNEAL PHARMACEUTICALS-2018AMN00656

PATIENT
  Age: 15 Year
  Sex: Female
  Weight: 49.89 kg

DRUGS (1)
  1. ISOTRETINOIN. [Suspect]
     Active Substance: ISOTRETINOIN
     Indication: ACNE
     Dosage: 40 MG, 1X/DAY
     Route: 048
     Dates: start: 20180714, end: 20180714

REACTIONS (9)
  - Hypertension [Recovered/Resolved]
  - White blood cell count increased [Recovered/Resolved]
  - Emergency care [Recovered/Resolved]
  - Dyspnoea [Recovered/Resolved]
  - Chapped lips [Recovered/Resolved]
  - Mean platelet volume decreased [Recovered/Resolved]
  - Epistaxis [Recovered/Resolved]
  - Oesophagitis [Recovered/Resolved]
  - Red cell distribution width decreased [Recovered/Resolved]

NARRATIVE: CASE EVENT DATE: 20180724
